FAERS Safety Report 7125615-1 (Version None)
Quarter: 2010Q4

REPORT INFORMATION
  Report Type: 
  Country: None (occurrence: None)
  Receive Date: 20101129
  Receipt Date: 20101020
  Transmission Date: 20110411
  Serious: No
  Sender: FDA-Public Use
  Company Number: US-MYLANLABS-2010S1018092

PATIENT
  Age: 63 Year
  Sex: Female

DRUGS (20)
  1. BACLOFEN [Suspect]
     Indication: MUSCLE SPASMS
     Dosage: TID PRN
     Dates: start: 20071206, end: 20080107
  2. BACLOFEN [Suspect]
     Indication: PAIN
     Dosage: TID PRN
     Dates: start: 20071206, end: 20080107
  3. BACLOFEN [Suspect]
     Dosage: TID PRN
     Dates: start: 20090106, end: 20100724
  4. BACLOFEN [Suspect]
     Dosage: TID PRN
     Dates: start: 20090106, end: 20100724
  5. CYMBALTA [Concomitant]
  6. CELEBREX [Concomitant]
  7. LISINOPRIL [Concomitant]
  8. NORVASC [Concomitant]
  9. VITAMIN B-12 [Concomitant]
     Route: 030
  10. ATENOLOL [Concomitant]
  11. LIPITOR [Concomitant]
  12. SYNTHROID [Concomitant]
  13. FIBER [Concomitant]
  14. ASPIRIN [Concomitant]
  15. CLARITIN /00917501/ [Concomitant]
  16. LORATADINE [Concomitant]
  17. VITAMIN TAB [Concomitant]
  18. FISH OIL [Concomitant]
  19. STOOL SOFTENER [Concomitant]
  20. CALCIUM [Concomitant]

REACTIONS (7)
  - ADVERSE EVENT [None]
  - DISTURBANCE IN ATTENTION [None]
  - DIZZINESS [None]
  - FATIGUE [None]
  - FEELING ABNORMAL [None]
  - FEELING DRUNK [None]
  - SOMNOLENCE [None]
